FAERS Safety Report 9740603 (Version 2)
Quarter: 2013Q4

REPORT INFORMATION
  Report Type: Spontaneous
  Country: US (occurrence: US)
  Receive Date: 20131209
  Receipt Date: 20131209
  Transmission Date: 20140711
  Serious: No
  Sender: FDA-Public Use
  Company Number: US-GILEAD-2012-0053819

PATIENT
  Sex: Female

DRUGS (4)
  1. LETAIRIS [Suspect]
     Indication: PULMONARY HYPERTENSION
     Dosage: 10 MG, UNK
     Route: 048
     Dates: start: 20101020
  2. LETAIRIS [Suspect]
     Indication: EISENMENGER^S SYNDROME
  3. LETAIRIS [Suspect]
     Indication: ATRIAL SEPTAL DEFECT
  4. TYVASO [Concomitant]

REACTIONS (2)
  - Infection [Unknown]
  - Cough [Unknown]
